FAERS Safety Report 7295099-1 (Version None)
Quarter: 2011Q1

REPORT INFORMATION
  Report Type: 
  Country: None (occurrence: None)
  Receive Date: 20110203
  Receipt Date: 20110118
  Transmission Date: 20110831
  Serious: Yes (Death)
  Sender: FDA-Public Use
  Company Number: B0694851A

PATIENT
  Age: 63 Year
  Sex: Female

DRUGS (6)
  1. CIMETIDINE [Suspect]
     Dosage: /ORAL
     Route: 048
  2. ACETAMIN+DIPHENHYDRAM HCL) [Suspect]
     Dosage: /ORAL
     Route: 048
  3. ISOPROPYL ALCOHOL [Suspect]
     Dosage: /ORAL
     Route: 048
  4. ANTACID TAB [Suspect]
     Dosage: /ORAL
     Route: 048
  5. POTASSIUM SALT [Suspect]
     Dosage: /ORAL
     Route: 048
  6. ETHANOL (ALCOHOL) [Suspect]
     Dosage: /ORAL
     Route: 048

REACTIONS (1)
  - COMPLETED SUICIDE [None]
